FAERS Safety Report 23295868 (Version 2)
Quarter: 2024Q2

REPORT INFORMATION
  Report Type: Spontaneous
  Country: IT (occurrence: IT)
  Receive Date: 20231214
  Receipt Date: 20240404
  Transmission Date: 20240715
  Serious: Yes (Other)
  Sender: FDA-Public Use
  Company Number: None

PATIENT
  Age: 80 Year
  Sex: Female

DRUGS (5)
  1. EDOXABAN TOSYLATE [Suspect]
     Active Substance: EDOXABAN TOSYLATE
     Indication: Atrial fibrillation
     Dosage: 60 MG, QD (LIXIANA*28CPR RIV 60MG - DOSAGE SCHEDULE: 1 CPR/DAY)
     Route: 048
     Dates: start: 20230210, end: 202309
  2. BISOPROLOL [Concomitant]
     Active Substance: BISOPROLOL\BISOPROLOL FUMARATE
     Indication: Hypertensive heart disease
     Dosage: 2 DF, QD (CONGESCOR*28CPR RIV 1.25MG - 2 CP/DAY)
     Route: 048
     Dates: start: 2023
  3. BARNIDIPINE HYDROCHLORIDE [Concomitant]
     Active Substance: BARNIDIPINE HYDROCHLORIDE
     Indication: Product used for unknown indication
     Dosage: 10 MG, QD (VASEXTEN*28CPS 10MG RM - 1 CP/DAY IN THE EVENING)
     Route: 048
     Dates: start: 2023
  4. ZETIA [Concomitant]
     Active Substance: EZETIMIBE
     Indication: Dyslipidaemia
     Dosage: 10 MG, QD (10MG- 1 CP/DAY IN THE EVENING)
     Route: 048
     Dates: start: 2023
  5. ZESTRIL [Concomitant]
     Active Substance: LISINOPRIL
     Indication: Hypertensive heart disease
     Dosage: 0.5 DF, BID (ZESTRIL*14CPR 20MG - ? CP 2 TIMES PER DAY)
     Route: 048
     Dates: start: 2023

REACTIONS (3)
  - Renal failure [Recovered/Resolved]
  - Blood creatinine increased [Recovered/Resolved]
  - Glomerular filtration rate decreased [Recovered/Resolved]

NARRATIVE: CASE EVENT DATE: 20230601
